FAERS Safety Report 13382125 (Version 2)
Quarter: 2017Q2

REPORT INFORMATION
  Report Type: Spontaneous
  Country: GR (occurrence: GR)
  Receive Date: 20170329
  Receipt Date: 20170403
  Transmission Date: 20170830
  Serious: Yes (Other)
  Sender: FDA-Public Use
  Company Number: ALCN2017GR002159

PATIENT
  Age: 71 Year
  Sex: Male

DRUGS (1)
  1. NEVANAC [Suspect]
     Active Substance: NEPAFENAC
     Indication: IRITIS
     Dosage: 1 GTT, QHS
     Route: 047
     Dates: start: 201701

REACTIONS (11)
  - Conjunctival oedema [Unknown]
  - Ocular hyperaemia [Unknown]
  - Corneal disorder [Unknown]
  - Eye allergy [Unknown]
  - Erythema of eyelid [Unknown]
  - Foreign body sensation in eyes [Unknown]
  - Eyelid oedema [Unknown]
  - Eye swelling [Unknown]
  - Periorbital oedema [Unknown]
  - Anterior chamber disorder [Unknown]
  - Erythema [Unknown]
